FAERS Safety Report 25588711 (Version 1)
Quarter: 2025Q3

REPORT INFORMATION
  Report Type: Spontaneous
  Country: EU (occurrence: EU)
  Receive Date: 20250722
  Receipt Date: 20250722
  Transmission Date: 20251020
  Serious: Yes (Hospitalization, Congenital Anomaly, Other)
  Sender: BIOVITRUM
  Company Number: GB-BIOVITRUM-2025-GB-009870

PATIENT
  Sex: Male

DRUGS (2)
  1. ANAKINRA [Suspect]
     Active Substance: ANAKINRA
     Indication: Product used for unknown indication
     Route: 064
  2. ANAKINRA [Suspect]
     Active Substance: ANAKINRA

REACTIONS (6)
  - Hypospadias [Unknown]
  - Congenital anomaly [Unknown]
  - Atrial septal defect [Unknown]
  - Foetal exposure during pregnancy [Recovered/Resolved]
  - Neonatal respiratory distress syndrome [Unknown]
  - Small for dates baby [Unknown]
